FAERS Safety Report 7128821-5 (Version None)
Quarter: 2010Q4

REPORT INFORMATION
  Report Type: 
  Country: None (occurrence: None)
  Receive Date: 20101130
  Receipt Date: 20101122
  Transmission Date: 20110411
  Serious: Yes (Life-Threatening)
  Sender: FDA-Public Use
  Company Number: FR-ASTRAZENECA-2010SE55738

PATIENT
  Age: 15499 Day
  Sex: Female

DRUGS (2)
  1. DIPRIVAN [Suspect]
     Indication: INDUCTION OF ANAESTHESIA
     Route: 042
     Dates: start: 20100924, end: 20100924
  2. SUCCINYLCHOLINE CHLORIDE [Suspect]
     Indication: ANAESTHESIA
     Route: 042
     Dates: start: 20100924, end: 20100924

REACTIONS (5)
  - BRONCHOSPASM [None]
  - CYANOSIS [None]
  - ERYTHEMA [None]
  - OEDEMA PERIPHERAL [None]
  - SHOCK [None]
